FAERS Safety Report 9988361 (Version 3)
Quarter: 2014Q2

REPORT INFORMATION
  Report Type: Report from Study
  Country: CA (occurrence: CA)
  Receive Date: 20140310
  Receipt Date: 20140430
  Transmission Date: 20141212
  Serious: No
  Sender: FDA-Public Use
  Company Number: CA-BIOGENIDEC-2014BI019835

PATIENT
  Age: 50 Year
  Sex: Female

DRUGS (6)
  1. PLACEBO [Suspect]
     Indication: SECONDARY PROGRESSIVE MULTIPLE SCLEROSIS
     Route: 042
     Dates: start: 20120605
  2. NEXIUM [Concomitant]
     Indication: COUGH
     Route: 048
     Dates: start: 200907
  3. MICARDIS [Concomitant]
     Indication: HYPERTENSION
     Route: 048
     Dates: start: 2006
  4. HYDERM [Concomitant]
     Indication: STRESS
     Route: 061
     Dates: start: 20120428
  5. SYNTHROID [Concomitant]
     Indication: HYPOTHYROIDISM
     Route: 048
     Dates: start: 20131205
  6. TOPAMAX [Concomitant]
     Indication: PAIN IN EXTREMITY
     Route: 048
     Dates: start: 20140216

REACTIONS (1)
  - Breast mass [Unknown]
